FAERS Safety Report 8243797-5 (Version None)
Quarter: 2012Q1

REPORT INFORMATION
  Report Type: 
  Country: None (occurrence: None)
  Receive Date: 20120329
  Receipt Date: 20111215
  Transmission Date: 20120608
  Serious: No
  Sender: FDA-Public Use
  Company Number: US-MYLANLABS-2011S1023995

PATIENT
  Sex: Female

DRUGS (5)
  1. WARFARIN SODIUM [Concomitant]
     Indication: ATRIAL FIBRILLATION
  2. NASONEX [Concomitant]
     Indication: MULTIPLE ALLERGIES
  3. TYLENOL [Concomitant]
  4. EMSAM [Suspect]
     Indication: DEPRESSION
     Dosage: Q24H
     Route: 062
  5. PULMICORT [Concomitant]
     Indication: ASTHMA
     Route: 055

REACTIONS (3)
  - HYPERSENSITIVITY [None]
  - APPLICATION SITE ERYTHEMA [None]
  - APPLICATION SITE PRURITUS [None]
